FAERS Safety Report 15844765 (Version 2)
Quarter: 2019Q1

REPORT INFORMATION
  Report Type: Report from Study
  Country: NL (occurrence: NL)
  Receive Date: 20190118
  Receipt Date: 20190205
  Transmission Date: 20190417
  Serious: Yes (Hospitalization)
  Sender: FDA-Public Use
  Company Number: NL-PFIZER INC-2019022613

PATIENT
  Age: 63 Year
  Sex: Male

DRUGS (6)
  1. PACLITAXEL. [Suspect]
     Active Substance: PACLITAXEL
     Indication: NON-SMALL CELL LUNG CANCER
     Dosage: 200 MG/M2, EVERY 3 WEEKS, DATE OF MOST RECENT DOSE OF 320 MG ON 11DEC2018
     Route: 042
     Dates: start: 20181024
  2. BEVACIZUMAB. [Suspect]
     Active Substance: BEVACIZUMAB
     Indication: NON-SMALL CELL LUNG CANCER
     Dosage: 15 MG/KG, EVERY 3 WEEKS, MOST RECENT DOSE 1325 MG ON 11DEC2018
     Route: 042
     Dates: start: 20181024
  3. CARBOPLATIN. [Suspect]
     Active Substance: CARBOPLATIN
     Indication: NON-SMALL CELL LUNG CANCER
     Dosage: UNK, EVERY 3 WEEKS, AREA UNDER THE CURVE 6, MOST RECENT DOSE 700 MG ON 11DEC2018
     Route: 042
     Dates: start: 20181024
  4. CEFUROXIME. [Concomitant]
     Active Substance: CEFUROXIME
     Dosage: 1500 MG, UNK
     Route: 042
     Dates: start: 20181223
  5. OXYCODON [Concomitant]
     Active Substance: OXYCODONE
     Dosage: 5 MG, UNK
     Dates: start: 20181119
  6. CEFUROXIME. [Concomitant]
     Active Substance: CEFUROXIME
     Dosage: 1000 MG, UNK
     Route: 048
     Dates: start: 20181225

REACTIONS (2)
  - Urinary tract infection [Not Recovered/Not Resolved]
  - Febrile neutropenia [Unknown]

NARRATIVE: CASE EVENT DATE: 20181223
